FAERS Safety Report 8232033-1 (Version None)
Quarter: 2012Q1

REPORT INFORMATION
  Report Type: 
  Country: None (occurrence: None)
  Receive Date: 20120323
  Receipt Date: 20120310
  Transmission Date: 20120608
  Serious: Yes (Death)
  Sender: FDA-Public Use
  Company Number: US-ENDO PHARMACEUTICALS INC.-OPIR20120027

PATIENT
  Sex: Male

DRUGS (3)
  1. ALCOHOL [Suspect]
     Indication: DRUG ABUSE
     Dosage: UNKNOWN
  2. OPANA [Suspect]
     Indication: DRUG ABUSE
  3. OPANA [Suspect]
     Indication: DRUG DIVERSION
     Dosage: UNKNOWN
     Route: 048

REACTIONS (6)
  - TOXICITY TO VARIOUS AGENTS [None]
  - OVERDOSE [None]
  - DRUG ABUSE [None]
  - UNRESPONSIVE TO STIMULI [None]
  - ALCOHOL POISONING [None]
  - DRUG DIVERSION [None]
